FAERS Safety Report 4697288-9 (Version None)
Quarter: 2005Q2

REPORT INFORMATION
  Report Type: 
  Country: None (occurrence: None)
  Receive Date: 20050622
  Receipt Date: 20050614
  Transmission Date: 20051028
  Serious: Yes (Death)
  Sender: FDA-Public Use
  Company Number: 2005UW09128

PATIENT
  Age: 54 Year
  Sex: Male

DRUGS (1)
  1. IRESSA [Suspect]
     Route: 048

REACTIONS (1)
  - DEATH [None]
